FAERS Safety Report 19226419 (Version 2)
Quarter: 2021Q2

REPORT INFORMATION
  Report Type: Spontaneous
  Country: JP (occurrence: JP)
  Receive Date: 20210506
  Receipt Date: 20210616
  Transmission Date: 20210717
  Serious: Yes (Hospitalization, Other)
  Sender: FDA-Public Use
  Company Number: JP-PFIZER INC-2021485046

PATIENT
  Age: 79 Year
  Sex: Female

DRUGS (1)
  1. METRONIDAZOLE. [Suspect]
     Active Substance: METRONIDAZOLE
     Dosage: UNK

REACTIONS (2)
  - Toxic encephalopathy [Recovered/Resolved with Sequelae]
  - Dementia [Recovered/Resolved with Sequelae]

NARRATIVE: CASE EVENT DATE: 20161118
